FAERS Safety Report 5356433-2 (Version None)
Quarter: 2007Q2

REPORT INFORMATION
  Report Type: 
  Country: None (occurrence: None)
  Receive Date: 20070612
  Receipt Date: 20070531
  Transmission Date: 20071010
  Serious: Yes (Hospitalization)
  Sender: FDA-Public Use
  Company Number: 107#08#2007-01951

PATIENT
  Age: 31 Year
  Sex: Female

DRUGS (3)
  1. METOCLOPRAMIDE [Suspect]
     Indication: GASTROINTESTINAL INFECTION
     Dosage: 10 MG
  2. MIRTAZAPINE [Concomitant]
  3. LORAZEPAM [Concomitant]

REACTIONS (15)
  - AGITATION [None]
  - BLOOD BILIRUBIN INCREASED [None]
  - DISTURBANCE IN ATTENTION [None]
  - DIZZINESS [None]
  - DRY MOUTH [None]
  - DYSPNOEA [None]
  - DYSTONIA [None]
  - EPIGASTRIC DISCOMFORT [None]
  - GENERALISED ANXIETY DISORDER [None]
  - HYPERHIDROSIS [None]
  - PALPITATIONS [None]
  - POLYDIPSIA [None]
  - POLYURIA [None]
  - SLEEP DISORDER [None]
  - THIRST [None]
